FAERS Safety Report 10626641 (Version 1)
Quarter: 2014Q4

REPORT INFORMATION
  Report Type: Spontaneous
  Country: US (occurrence: US)
  Receive Date: 20141204
  Receipt Date: 20141204
  Transmission Date: 20150529
  Serious: Yes (Other)
  Sender: FDA-Public Use
  Company Number: US-TEVA-525125USA

PATIENT
  Age: 58 Year
  Sex: Female

DRUGS (2)
  1. PENTOBARBITAL [Suspect]
     Active Substance: PENTOBARBITAL
     Indication: BRAIN OEDEMA
     Route: 065
  2. PROPOFOL. [Suspect]
     Active Substance: PROPOFOL
     Indication: BRAIN OEDEMA
     Route: 065

REACTIONS (2)
  - Drug withdrawal syndrome [Recovered/Resolved]
  - Electroencephalogram abnormal [Recovered/Resolved]
